FAERS Safety Report 4847991-2 (Version None)
Quarter: 2005Q4

REPORT INFORMATION
  Report Type: 
  Country: None (occurrence: None)
  Receive Date: 20051208
  Receipt Date: 20050412
  Transmission Date: 20060501
  Serious: Yes (Hospitalization)
  Sender: FDA-Public Use
  Company Number: US-KINGPHARMUSA00001-K200500488

PATIENT
  Age: 53 Year
  Sex: Male

DRUGS (5)
  1. ALTACE [Suspect]
     Dosage: 5 MG, QD
     Route: 048
  2. LASILIX [Suspect]
     Dosage: 125 MG, QD
     Route: 048
     Dates: end: 20050316
  3. LEVOTHYROX [Suspect]
     Dosage: 75 UG, QD
     Route: 048
  4. TAHOR [Suspect]
     Dosage: 40 MG, QD
     Route: 048
     Dates: end: 20050316
  5. HYZAAR [Suspect]
     Dosage: 50/12.5 MG, QD
     Route: 048

REACTIONS (9)
  - ACNE [None]
  - GLOMERULONEPHRITIS ACUTE [None]
  - HYPERCHOLESTEROLAEMIA [None]
  - HYPOTHYROIDISM [None]
  - LUNG DISORDER [None]
  - NEPHROTIC SYNDROME [None]
  - PRURITUS [None]
  - STAPHYLOCOCCAL INFECTION [None]
  - WRIST FRACTURE [None]
